FAERS Safety Report 9805806 (Version 1)
Quarter: 2014Q1

REPORT INFORMATION
  Report Type: Spontaneous
  Country: ES (occurrence: ES)
  Receive Date: 20140109
  Receipt Date: 20140109
  Transmission Date: 20141002
  Serious: Yes (Hospitalization)
  Sender: FDA-Public Use
  Company Number: ES-B.I. PHARMACEUTICALS,INC./RIDGEFIELD-2014-BI-00710ES

PATIENT
  Age: 78 Year
  Sex: Female

DRUGS (2)
  1. MICARDISPLUS [Suspect]
  2. LYRICA [Suspect]

REACTIONS (2)
  - Accidental overdose [Unknown]
  - Accidental overdose [Unknown]
